FAERS Safety Report 8556636-X (Version None)
Quarter: 2012Q3

REPORT INFORMATION
  Report Type: 
  Country: None (occurrence: None)
  Receive Date: 20120726
  Receipt Date: 20120726
  Transmission Date: 20120928
  Serious: Yes (Hospitalization, Other)
  Sender: FDA-Public Use
  Company Number: None

PATIENT
  Sex: Female

DRUGS (1)
  1. FLUTICASONE PROPIONATE [Suspect]
     Indication: ASTHMA
     Dosage: TWICE A DAY, PO
     Route: 048

REACTIONS (11)
  - OEDEMA MOUTH [None]
  - BLOOD PRESSURE INCREASED [None]
  - ASTHENIA [None]
  - HYPERSENSITIVITY [None]
  - CHEST PAIN [None]
  - SWOLLEN TONGUE [None]
  - DYSPHONIA [None]
  - DYSPNOEA [None]
  - SWELLING FACE [None]
  - HEART RATE IRREGULAR [None]
  - IMMUNE SYSTEM DISORDER [None]
